FAERS Safety Report 20135837 (Version 1)
Quarter: 2021Q4

REPORT INFORMATION
  Report Type: Spontaneous
  Country: US (occurrence: None)
  Receive Date: 20211201
  Receipt Date: 20211201
  Transmission Date: 20220304
  Serious: Yes (Hospitalization)
  Sender: FDA-Public Use
  Company Number: None

PATIENT
  Age: 37 Year
  Sex: Male

DRUGS (1)
  1. HUMIRA [Suspect]
     Active Substance: ADALIMUMAB
     Indication: Product used for unknown indication
     Dosage: FREQUENCY : WEEKLY;?
     Route: 058
     Dates: start: 20210219

REACTIONS (3)
  - Arthralgia [None]
  - Furuncle [None]
  - Condition aggravated [None]

NARRATIVE: CASE EVENT DATE: 20211120
